FAERS Safety Report 15462370 (Version 6)
Quarter: 2018Q4

REPORT INFORMATION
  Report Type: Report from Study
  Country: US (occurrence: US)
  Receive Date: 20181004
  Receipt Date: 20181218
  Transmission Date: 20190204
  Serious: Yes (Death, Life-Threatening, Hospitalization, Other)
  Sender: FDA-Public Use
  Company Number: US-BRISTOL-MYERS SQUIBB COMPANY-BMS-2018-090276

PATIENT
  Age: 73 Year
  Sex: Male
  Weight: 80.1 kg

DRUGS (3)
  1. LIPITOR [Concomitant]
     Active Substance: ATORVASTATIN CALCIUM
     Indication: PRODUCT USED FOR UNKNOWN INDICATION
     Dosage: UNK
     Route: 065
  2. NIVOLUMAB [Suspect]
     Active Substance: NIVOLUMAB
     Indication: RENAL CELL CARCINOMA
     Dosage: UNK
     Route: 042
     Dates: start: 20180828, end: 20180828
  3. HYTRIN [Concomitant]
     Active Substance: TERAZOSIN HYDROCHLORIDE
     Indication: PRODUCT USED FOR UNKNOWN INDICATION
     Dosage: UNK
     Route: 065

REACTIONS (13)
  - Cardiac arrest [Recovered/Resolved]
  - Myocardial infarction [Recovered/Resolved]
  - Myocarditis [Unknown]
  - Blood creatine phosphokinase increased [Recovered/Resolved]
  - Myasthenia gravis [Not Recovered/Not Resolved]
  - Myositis [Not Recovered/Not Resolved]
  - Ventricular tachycardia [Unknown]
  - Alanine aminotransferase increased [Recovered/Resolved]
  - Aspartate aminotransferase increased [Recovered/Resolved]
  - Vestibular disorder [Not Recovered/Not Resolved]
  - Troponin I increased [Recovered/Resolved]
  - Death [Fatal]
  - Autoimmune hepatitis [Unknown]

NARRATIVE: CASE EVENT DATE: 201809
